FAERS Safety Report 5964419-X (Version None)
Quarter: 2008Q4

REPORT INFORMATION
  Report Type: 
  Country: None (occurrence: None)
  Receive Date: 20081124
  Receipt Date: 20081120
  Transmission Date: 20090506
  Serious: Yes (Disabling)
  Sender: FDA-Public Use
  Company Number: GB-PFIZER INC-2008098679

PATIENT
  Age: 32 Year
  Sex: Male

DRUGS (2)
  1. CHAMPIX [Suspect]
     Indication: SMOKING CESSATION THERAPY
     Route: 048
     Dates: start: 20080618, end: 20080805
  2. FLOXACILLIN SODIUM [Concomitant]
     Route: 048
     Dates: start: 20080604, end: 20080611

REACTIONS (5)
  - APATHY [None]
  - ARTHRALGIA [None]
  - DEPRESSED MOOD [None]
  - FATIGUE [None]
  - MOUTH ULCERATION [None]
